FAERS Safety Report 9730146 (Version 1)
Quarter: 2013Q4

REPORT INFORMATION
  Report Type: Spontaneous
  Country: US (occurrence: US)
  Receive Date: 20131204
  Receipt Date: 20131204
  Transmission Date: 20140711
  Serious: No
  Sender: FDA-Public Use
  Company Number: US-009507513-1307USA011908

PATIENT
  Age: 56 Year
  Sex: Female
  Weight: 74.83 kg

DRUGS (4)
  1. CHLOR-TRIMETON 12 HOUR [Suspect]
     Indication: URTICARIA
     Dosage: 1 DF, ONCE
     Route: 048
     Dates: start: 20130625
  2. CHLOR-TRIMETON 12 HOUR [Suspect]
     Indication: PRURITUS
  3. TRAMADOL HYDROCHLORIDE [Suspect]
     Indication: BACK PAIN
     Dosage: 50 MG, ONCE
     Route: 048
     Dates: start: 20130624, end: 20130624
  4. BENADRYL [Suspect]
     Indication: PRURITUS
     Dosage: 1 DF, ONCE
     Route: 048
     Dates: start: 20130626

REACTIONS (3)
  - Tachycardia [Not Recovered/Not Resolved]
  - Lethargy [Not Recovered/Not Resolved]
  - Condition aggravated [Not Recovered/Not Resolved]
